FAERS Safety Report 15638553 (Version 4)
Quarter: 2018Q4

REPORT INFORMATION
  Report Type: Spontaneous
  Country: US (occurrence: US)
  Receive Date: 20181120
  Receipt Date: 20181126
  Transmission Date: 20190205
  Serious: Yes (Hospitalization, Other)
  Sender: FDA-Public Use
  Company Number: US-PFIZER INC-2018458732

PATIENT
  Age: 27 Year
  Sex: Male

DRUGS (3)
  1. DEXTROMETHORPHAN HYDROBROMIDE/GUAIFENESIN [Suspect]
     Active Substance: DEXTROMETHORPHAN HYDROBROMIDE\GUAIFENESIN
     Indication: SUBSTANCE USE
     Dosage: UNK
     Route: 048
  2. ACETAMINOPHEN. [Concomitant]
     Active Substance: ACETAMINOPHEN
     Indication: BACK PAIN
     Dosage: UNK
  3. METHAMPHETAMINE HCL [Concomitant]
     Active Substance: METHAMPHETAMINE HYDROCHLORIDE
     Indication: BACK PAIN
     Dosage: UNK

REACTIONS (3)
  - Drug abuse [Unknown]
  - Neuropsychiatric symptoms [Recovering/Resolving]
  - Toxicity to various agents [Recovering/Resolving]
